FAERS Safety Report 17384333 (Version 1)
Quarter: 2020Q1

REPORT INFORMATION
  Report Type: Spontaneous
  Country: US (occurrence: US)
  Receive Date: 20200206
  Receipt Date: 20200206
  Transmission Date: 20200409
  Serious: No
  Sender: FDA-Public Use
  Company Number: US-ABBVIE-19K-163-2873013-00

PATIENT
  Age: 75 Year
  Sex: Female

DRUGS (2)
  1. HUMIRA [Suspect]
     Active Substance: ADALIMUMAB
     Route: 058
     Dates: start: 2019
  2. HUMIRA [Suspect]
     Active Substance: ADALIMUMAB
     Indication: CROHN^S DISEASE
     Dosage: LOADING DOSE
     Route: 058
     Dates: start: 201904, end: 201904

REACTIONS (13)
  - Panic reaction [Unknown]
  - Fear [Unknown]
  - Injection site pain [Not Recovered/Not Resolved]
  - Device issue [Unknown]
  - Wrong technique in product usage process [Unknown]
  - Hypophagia [Unknown]
  - Injection site reaction [Unknown]
  - Emotional distress [Unknown]
  - Confusional state [Unknown]
  - Stress [Unknown]
  - Weight decreased [Unknown]
  - Injection site erythema [Not Recovered/Not Resolved]
  - Incorrect dose administered [Unknown]

NARRATIVE: CASE EVENT DATE: 2019
